FAERS Safety Report 8525452-7 (Version None)
Quarter: 2012Q3

REPORT INFORMATION
  Report Type: 
  Country: None (occurrence: None)
  Receive Date: 20120720
  Receipt Date: 20120712
  Transmission Date: 20120928
  Serious: Yes (Hospitalization, Other)
  Sender: FDA-Public Use
  Company Number: SE-JNJFOC-20120607691

PATIENT
  Sex: Female

DRUGS (15)
  1. LEPHETON [Concomitant]
     Route: 065
  2. EMOVAT [Concomitant]
     Dosage: DOSE: 0.5MG/ML+ 1MG/ML
     Route: 065
  3. DESENTOL [Concomitant]
     Route: 065
  4. METHOTREXATE SODIUM [Concomitant]
     Route: 065
  5. OMEPRAZOLE [Concomitant]
     Route: 065
  6. ACETAMINOPHEN [Concomitant]
     Route: 065
  7. MORPHINE SULFATE [Concomitant]
     Dosage: DOSE: 0.5MG/ML+ 1MG/ML
     Route: 065
  8. REMICADE [Suspect]
     Indication: PSORIASIS
     Dosage: CYCLICAL
     Route: 042
     Dates: start: 20110909, end: 20120322
  9. MOLLIPECT [Concomitant]
     Dosage: DOSE: 0.5MG/ML AND 1MG/ML
     Route: 048
  10. REMICADE [Suspect]
     Indication: PSORIATIC ARTHROPATHY
     Dosage: CYCLICAL
     Route: 042
     Dates: start: 20110909, end: 20120322
  11. UNKNOWN MEDICATION [Concomitant]
     Route: 065
  12. DESOGESTREL AND ETHINYL ESTRADIOL [Concomitant]
     Dosage: DOSE: 0.5MG/ML+ 1MG/ML
     Route: 065
  13. ARCOXIA [Concomitant]
     Route: 065
  14. FOLIC ACID [Concomitant]
     Route: 065
  15. KETOPROFEN [Concomitant]
     Route: 065

REACTIONS (3)
  - HEPATIC STEATOSIS [None]
  - CHRONIC HEPATITIS [None]
  - UPPER RESPIRATORY TRACT INFECTION [None]
